FAERS Safety Report 8575671 (Version 2)
Quarter: 2012Q4

REPORT INFORMATION
  Report Type: 
  Country: US (occurrence: US)
  Receive Date: 20120523
  Receipt Date: 20121107
  Transmission Date: 20130627
  Serious: Yes (Hospitalization)
  Sender: FDA-Public Use
  Company Number: US-PFIZER INC-2012123819

PATIENT
  Age: 30 Year
  Sex: Male

DRUGS (2)
  1. CHANTIX [Suspect]
     Indication: SMOKING CESSATION THERAPY
     Dosage: starter pack and continuing pack
     Route: 048
     Dates: start: 200905, end: 200907
  2. CHANTIX [Suspect]
     Dosage: starter pack and continuing pack
     Dates: start: 201005, end: 201005

REACTIONS (6)
  - Paranoia [Unknown]
  - Delusion [Unknown]
  - Depression [Not Recovered/Not Resolved]
  - Anxiety [Recovered/Resolved]
  - Insomnia [Unknown]
  - Psychotic disorder [Unknown]
